FAERS Safety Report 5678037-4 (Version None)
Quarter: 2008Q1

REPORT INFORMATION
  Report Type: 
  Country: None (occurrence: None)
  Receive Date: 20080319
  Receipt Date: 20080227
  Transmission Date: 20080703
  Serious: Yes (Death)
  Sender: FDA-Public Use
  Company Number: 2008S1003228

PATIENT
  Age: 6 Year
  Sex: Male

DRUGS (12)
  1. PREDNISONE [Suspect]
     Indication: BURKITT'S LYMPHOMA
  2. METHOTREXATE [Suspect]
     Indication: PROPHYLAXIS AGAINST GRAFT VERSUS HOST DISEASE
     Dosage: INTRATHECAL
     Route: 037
  3. IFOSFAMIDE [Suspect]
     Indication: BURKITT'S LYMPHOMA
  4. CARBOPLATIN [Suspect]
     Indication: BURKITT'S LYMPHOMA
  5. ETOPOSIDE [Suspect]
     Indication: BURKITT'S LYMPHOMA
  6. DOXORUBICIN HCL [Suspect]
     Indication: BURKITT'S LYMPHOMA
  7. CYCLOPHOSPHAMIDE [Suspect]
     Indication: BURKITT'S LYMPHOMA
  8. VINCRISTINE [Suspect]
     Indication: BURKITT'S LYMPHOMA
  9. RITUXIMAB [Suspect]
     Indication: BURKITT'S LYMPHOMA
  10. CIDOFOVIR [Suspect]
  11. CYCLOSPORINE [Concomitant]
  12. CORTICOSTEROIDS [Concomitant]

REACTIONS (12)
  - ACUTE GRAFT VERSUS HOST DISEASE IN LIVER [None]
  - ACUTE GRAFT VERSUS HOST DISEASE IN SKIN [None]
  - ADENOVIRUS INFECTION [None]
  - BURKITT'S LYMPHOMA RECURRENT [None]
  - COMA [None]
  - DEMYELINATION [None]
  - ENCEPHALOPATHY [None]
  - GLIOSIS [None]
  - RESPIRATORY DISORDER [None]
  - STEM CELL TRANSPLANT [None]
  - SUBDURAL EFFUSION [None]
  - VIRAL DIARRHOEA [None]
